FAERS Safety Report 6704693-5 (Version None)
Quarter: 2010Q2

REPORT INFORMATION
  Report Type: 
  Country: None (occurrence: None)
  Receive Date: 20100430
  Receipt Date: 20100419
  Transmission Date: 20101027
  Serious: Yes (Death, Life-Threatening, Hospitalization, Other)
  Sender: FDA-Public Use
  Company Number: GB-MEDIMMUNE-MEDI-0010498

PATIENT
  Sex: Male
  Weight: 9 kg

DRUGS (5)
  1. SYNAGIS [Suspect]
     Dates: start: 20091001
  2. SIDANAFIL [Concomitant]
     Indication: PULMONARY HYPERTENSION
     Route: 051
  3. FUROSEMIDE [Concomitant]
     Route: 051
  4. SPIRONOLACTONE [Concomitant]
     Route: 051
  5. OMEPRAZOLE [Concomitant]
     Route: 051

REACTIONS (7)
  - DYSPNOEA [None]
  - OXYGEN SATURATION DECREASED [None]
  - RESPIRATORY DISORDER [None]
  - RESPIRATORY DISTRESS [None]
  - RESPIRATORY FAILURE [None]
  - RESPIRATORY SYNCYTIAL VIRUS INFECTION [None]
  - VACCINATION FAILURE [None]
